FAERS Safety Report 5525592-0 (Version None)
Quarter: 2007Q4

REPORT INFORMATION
  Report Type: 
  Country: None (occurrence: None)
  Receive Date: 20071126
  Receipt Date: 20071116
  Transmission Date: 20080405
  Serious: Yes (Other)
  Sender: FDA-Public Use
  Company Number: D0055167A

PATIENT
  Age: 54 Year
  Sex: Female

DRUGS (1)
  1. SEROXAT [Suspect]
     Indication: PANIC ATTACK
     Dosage: 20MG PER DAY
     Route: 048
     Dates: start: 20010101

REACTIONS (6)
  - COMPLEX REGIONAL PAIN SYNDROME [None]
  - FALL [None]
  - MUSCLE ATROPHY [None]
  - PAIN [None]
  - RADIUS FRACTURE [None]
  - WEIGHT INCREASED [None]
